FAERS Safety Report 9687881 (Version 1)
Quarter: 2013Q4

REPORT INFORMATION
  Report Type: Spontaneous
  Country: NL (occurrence: None)
  Receive Date: 20131112
  Receipt Date: 20131112
  Transmission Date: 20140711
  Serious: Yes (Hospitalization)
  Sender: FDA-Public Use
  Company Number: AUR-APL-2013-09384

PATIENT
  Age: 55 Year
  Sex: Female

DRUGS (8)
  1. PANTOPRAZOLE [Suspect]
     Indication: PROPHYLAXIS AGAINST GASTROINTESTINAL ULCER
     Route: 048
     Dates: start: 201309, end: 20131017
  2. CARBOPLATINE (CARBOPLATIN) [Concomitant]
  3. GEMCITABINE [Concomitant]
  4. OXAZEPAM [Concomitant]
  5. PARACETAMOL [Concomitant]
  6. SIMVASTATIN [Concomitant]
  7. ACTIQ (FENTANYL CITRATE) [Concomitant]
  8. CLOPIDOGREL [Concomitant]

REACTIONS (3)
  - Hypokalaemia [None]
  - Hypocalcaemia [None]
  - Hypomagnesaemia [None]
